FAERS Safety Report 12716617 (Version 2)
Quarter: 2016Q3

REPORT INFORMATION
  Report Type: Spontaneous
  Country: CN (occurrence: CN)
  Receive Date: 20160906
  Receipt Date: 20160914
  Transmission Date: 20161109
  Serious: Yes (Other)
  Sender: FDA-Public Use
  Company Number: CN-PFIZER INC-2016411515

PATIENT
  Sex: Female

DRUGS (2)
  1. VFEND [Suspect]
     Active Substance: VORICONAZOLE
     Dosage: 200 MG, 1X/DAY
     Route: 042
  2. VFEND [Suspect]
     Active Substance: VORICONAZOLE
     Indication: PNEUMONIA FUNGAL
     Dosage: 400 MG, 1X/DAY
     Route: 042

REACTIONS (5)
  - Papilloedema [Unknown]
  - Blindness [Not Recovered/Not Resolved]
  - Retinal ischaemia [Unknown]
  - Visual impairment [Not Recovered/Not Resolved]
  - Quadrantanopia [Not Recovered/Not Resolved]
